FAERS Safety Report 5907016-4 (Version None)
Quarter: 2008Q4

REPORT INFORMATION
  Report Type: 
  Country: None (occurrence: None)
  Receive Date: 20081002
  Receipt Date: 20081002
  Transmission Date: 20090506
  Serious: Yes (Other)
  Sender: FDA-Public Use
  Company Number: None

PATIENT
  Sex: Female

DRUGS (2)
  1. LIPITOR [Suspect]
     Indication: BLOOD CHOLESTEROL
     Dosage: 40MG DAILY PO
     Route: 048
     Dates: start: 20051011, end: 20070301
  2. LIPITOR [Suspect]
     Indication: BLOOD CHOLESTEROL
     Dosage: 20MG DAILY PO
     Route: 048
     Dates: start: 20070901, end: 20081001

REACTIONS (10)
  - ARTHRALGIA [None]
  - CHEST PAIN [None]
  - DEMENTIA [None]
  - DISORIENTATION [None]
  - DISTURBANCE IN ATTENTION [None]
  - DRUG INEFFECTIVE [None]
  - FATIGUE [None]
  - INSOMNIA [None]
  - PAIN [None]
  - THINKING ABNORMAL [None]
